FAERS Safety Report 20405038 (Version 1)
Quarter: 2022Q1

REPORT INFORMATION
  Report Type: Spontaneous
  Country: US (occurrence: US)
  Receive Date: 20220131
  Receipt Date: 20220131
  Transmission Date: 20220423
  Serious: Yes (Hospitalization)
  Sender: FDA-Public Use
  Company Number: US-RECORDATI RARE DISEASE INC.-2022000308

PATIENT
  Age: 5 Month
  Sex: Male
  Weight: 6.6 kg

DRUGS (5)
  1. DACTINOMYCIN [Suspect]
     Active Substance: DACTINOMYCIN
     Indication: Embryonal rhabdomyosarcoma
     Dosage: UNK, PER DOSING TABLE, CYCLICAL
     Route: 042
     Dates: start: 2016
  2. IRINOTECAN HYDROCHLORIDE [Suspect]
     Active Substance: IRINOTECAN HYDROCHLORIDE
     Indication: Embryonal rhabdomyosarcoma
     Dosage: UNK, PER DOSING TABLE, CYCLICAL
     Route: 042
     Dates: start: 2016, end: 20161105
  3. TEMSIROLIMUS [Suspect]
     Active Substance: TEMSIROLIMUS
     Indication: Embryonal rhabdomyosarcoma
     Dosage: UNK, PER DOSING TABLE, CYCLICAL
     Route: 042
     Dates: start: 2016, end: 20161102
  4. VINCRISTINE SULFATE [Suspect]
     Active Substance: VINCRISTINE SULFATE
     Indication: Embryonal rhabdomyosarcoma
     Dosage: UNK, PER DOSING TABLE, CYCLICAL
     Route: 042
     Dates: start: 2016, end: 20161102
  5. CYCLOPHOSPHAMIDE [Suspect]
     Active Substance: CYCLOPHOSPHAMIDE
     Indication: Embryonal rhabdomyosarcoma
     Dosage: UNK, PER DOSING TABLE, CYCLICAL
     Route: 042
     Dates: start: 2016

REACTIONS (5)
  - Dehydration [Unknown]
  - Hypoglycaemia [Unknown]
  - Decreased appetite [Unknown]
  - Asthenia [Unknown]
  - Diarrhoea [Unknown]

NARRATIVE: CASE EVENT DATE: 20161102
